FAERS Safety Report 9182037 (Version 3)
Quarter: 2013Q2

REPORT INFORMATION
  Report Type: Spontaneous
  Country: FR (occurrence: FR)
  Receive Date: 20130322
  Receipt Date: 20130529
  Transmission Date: 20140414
  Serious: Yes (Death, Other)
  Sender: FDA-Public Use
  Company Number: FR-B.I. PHARMACEUTICALS,INC./RIDGEFIELD-2013-FF-00775FF

PATIENT
  Age: 83 Year
  Sex: Male
  Weight: 75 kg

DRUGS (6)
  1. PRADAXA [Suspect]
     Indication: ATRIAL FIBRILLATION
     Dosage: 220 MG
     Route: 048
     Dates: end: 20130227
  2. PRADAXA [Suspect]
     Dosage: 110 MG
     Route: 048
     Dates: start: 20130228, end: 20130228
  3. RAMIPRIL [Concomitant]
     Indication: HYPERTENSION
     Dosage: 2.5 MG
     Dates: start: 2009
  4. STALEVO [Concomitant]
     Indication: PARKINSON^S DISEASE
     Dosage: 300 MG
     Dates: start: 2007
  5. REQUIP [Concomitant]
     Indication: PARKINSON^S DISEASE
     Dosage: 2.25 MG
     Dates: start: 2007
  6. CALCIT D3 [Concomitant]
     Indication: OSTEOPOROSIS
     Dosage: 2.25 MG
     Dates: start: 2007

REACTIONS (2)
  - Gastrointestinal haemorrhage [Fatal]
  - Haemoglobin decreased [Unknown]
